FAERS Safety Report 6603942-1 (Version None)
Quarter: 2010Q1

REPORT INFORMATION
  Report Type: 
  Country: None (occurrence: None)
  Receive Date: 20100226
  Receipt Date: 20090324
  Transmission Date: 20100710
  Serious: No
  Sender: FDA-Public Use
  Company Number: A0775060A

PATIENT
  Age: 30 Year
  Sex: Male

DRUGS (5)
  1. LAMICTAL CD [Suspect]
     Indication: BIPOLAR DISORDER
     Dosage: 25MG PER DAY
     Route: 048
     Dates: start: 20090201, end: 20090322
  2. ZOLOFT [Concomitant]
  3. KLONOPIN [Concomitant]
  4. CLARITIN [Concomitant]
  5. ZYRTEC [Concomitant]

REACTIONS (3)
  - LYMPHADENOPATHY [None]
  - MOOD SWINGS [None]
  - RASH [None]
